FAERS Safety Report 4287366-0 (Version None)
Quarter: 2004Q1

REPORT INFORMATION
  Report Type: 
  Country: None (occurrence: None)
  Receive Date: 20040205
  Receipt Date: 20040113
  Transmission Date: 20041129
  Serious: Yes (Death)
  Sender: FDA-Public Use
  Company Number: A01200305670

PATIENT
  Age: 72 Year
  Sex: Male

DRUGS (3)
  1. (OXALIPLATIN) - 50 MG [Suspect]
     Indication: COLORECTAL CANCER METASTATIC
     Dosage: 150 MG/M2 OTHER, INTRAVENOUS NOS
     Route: 042
     Dates: start: 20031201, end: 20031201
  2. FLUOROURACIL [Concomitant]
  3. LEUCOVORIN CALCIUM [Concomitant]

REACTIONS (6)
  - ANAPHYLACTIC SHOCK [None]
  - BLOOD PRESSURE DECREASED [None]
  - BRONCHOSPASM [None]
  - MYDRIASIS [None]
  - PRURITUS [None]
  - RASH [None]
